FAERS Safety Report 5722958-0 (Version None)
Quarter: 2008Q2

REPORT INFORMATION
  Report Type: 
  Country: None (occurrence: None)
  Receive Date: 20080430
  Receipt Date: 20080424
  Transmission Date: 20081010
  Serious: Yes (Hospitalization, Other)
  Sender: FDA-Public Use
  Company Number: FR-BRISTOL-MYERS SQUIBB COMPANY-14166094

PATIENT
  Age: 25 Year
  Sex: Female

DRUGS (1)
  1. ABILIFY [Suspect]
     Dosage: TAKEN SINCE OCTOBER OR NOVEMBER. ONGOING AT 30MG/DAY.
     Dates: start: 20070101

REACTIONS (4)
  - AMNESIA [None]
  - DELUSION [None]
  - DISSOCIATIVE DISORDER [None]
  - PHYSICAL ASSAULT [None]
